FAERS Safety Report 22180065 (Version 5)
Quarter: 2025Q2

REPORT INFORMATION
  Report Type: Spontaneous
  Country: JP (occurrence: JP)
  Receive Date: 20230406
  Receipt Date: 20250612
  Transmission Date: 20250717
  Serious: Yes (Death, Other)
  Sender: UNITED THERAPEUTICS
  Company Number: JP-UNITED THERAPEUTICS-UNT-2022-023138

PATIENT
  Age: 18 Year
  Sex: Male
  Weight: 60.698 kg

DRUGS (40)
  1. UNITUXIN [Suspect]
     Active Substance: DINUTUXIMAB
     Indication: Neuroblastoma
     Route: 041
     Dates: start: 20220926, end: 20220929
  2. UNITUXIN [Suspect]
     Active Substance: DINUTUXIMAB
     Route: 041
     Dates: start: 20221114, end: 20221117
  3. UNITUXIN [Suspect]
     Active Substance: DINUTUXIMAB
     Route: 041
     Dates: start: 20221212, end: 20221215
  4. UNITUXIN [Suspect]
     Active Substance: DINUTUXIMAB
     Route: 041
     Dates: start: 20230117, end: 20230120
  5. UNITUXIN [Suspect]
     Active Substance: DINUTUXIMAB
     Route: 041
     Dates: start: 20230213, end: 20230216
  6. UNITUXIN [Suspect]
     Active Substance: DINUTUXIMAB
     Route: 041
     Dates: start: 20230320, end: 20230323
  7. TECELEUKIN [Suspect]
     Active Substance: TECELEUKIN
     Indication: Neuroblastoma
     Dates: start: 20221107, end: 20221110
  8. TECELEUKIN [Suspect]
     Active Substance: TECELEUKIN
     Dates: start: 20221114, end: 20221117
  9. TECELEUKIN [Suspect]
     Active Substance: TECELEUKIN
     Dates: start: 20230110, end: 20230113
  10. TECELEUKIN [Suspect]
     Active Substance: TECELEUKIN
     Dates: start: 20230117, end: 20230118
  11. TECELEUKIN [Suspect]
     Active Substance: TECELEUKIN
     Dates: start: 20230320, end: 20230323
  12. TECELEUKIN [Suspect]
     Active Substance: TECELEUKIN
  13. GRANULOCYTE COLONY-STIMULATING FACTOR NOS [Concomitant]
     Active Substance: GRANULOCYTE COLONY-STIMULATING FACTOR NOS
     Indication: Neuroblastoma
     Dosage: 5 ?G/KG, QD
     Dates: start: 20220923, end: 20221006
  14. GRANULOCYTE COLONY-STIMULATING FACTOR NOS [Concomitant]
     Active Substance: GRANULOCYTE COLONY-STIMULATING FACTOR NOS
     Dosage: 5 ?G/KG, QD
     Dates: start: 20221209, end: 20221222
  15. GRANULOCYTE COLONY-STIMULATING FACTOR NOS [Concomitant]
     Active Substance: GRANULOCYTE COLONY-STIMULATING FACTOR NOS
     Dosage: 5 ?G/KG, QD
     Dates: start: 20230210, end: 20230219
  16. GRANULOCYTE COLONY-STIMULATING FACTOR NOS [Concomitant]
     Active Substance: GRANULOCYTE COLONY-STIMULATING FACTOR NOS
     Dosage: 5 ?G/KG, QD
     Dates: start: 20230221, end: 20230222
  17. HYDROXYZINE [Concomitant]
     Active Substance: HYDROXYZINE HYDROCHLORIDE
     Indication: Prophylaxis
     Dates: start: 20220926, end: 20220929
  18. HYDROXYZINE [Concomitant]
     Active Substance: HYDROXYZINE HYDROCHLORIDE
     Dates: start: 20221107, end: 20221110
  19. HYDROXYZINE [Concomitant]
     Active Substance: HYDROXYZINE HYDROCHLORIDE
     Dates: start: 20221114, end: 20221117
  20. HYDROXYZINE [Concomitant]
     Active Substance: HYDROXYZINE HYDROCHLORIDE
     Dates: start: 20221212, end: 20221215
  21. HYDROXYZINE [Concomitant]
     Active Substance: HYDROXYZINE HYDROCHLORIDE
     Dates: start: 20230110, end: 20230110
  22. HYDROXYZINE [Concomitant]
     Active Substance: HYDROXYZINE HYDROCHLORIDE
     Dates: start: 20230117, end: 20230120
  23. HYDROXYZINE [Concomitant]
     Active Substance: HYDROXYZINE HYDROCHLORIDE
     Dates: start: 20230213, end: 20230216
  24. HYDROXYZINE [Concomitant]
     Active Substance: HYDROXYZINE HYDROCHLORIDE
     Dates: start: 20230313, end: 20230313
  25. HYDROXYZINE [Concomitant]
     Active Substance: HYDROXYZINE HYDROCHLORIDE
     Dates: start: 20230320, end: 20230323
  26. ACETAMINOPHEN [Concomitant]
     Active Substance: ACETAMINOPHEN
     Indication: Prophylaxis
     Dates: start: 20220926, end: 20221001
  27. ACETAMINOPHEN [Concomitant]
     Active Substance: ACETAMINOPHEN
     Dates: start: 20221107, end: 20221117
  28. ACETAMINOPHEN [Concomitant]
     Active Substance: ACETAMINOPHEN
     Dates: start: 20221212, end: 20221215
  29. ACETAMINOPHEN [Concomitant]
     Active Substance: ACETAMINOPHEN
     Dates: start: 20230110, end: 20230113
  30. ACETAMINOPHEN [Concomitant]
     Active Substance: ACETAMINOPHEN
     Dates: start: 20230117, end: 20230120
  31. ACETAMINOPHEN [Concomitant]
     Active Substance: ACETAMINOPHEN
     Dates: start: 20230213, end: 20230216
  32. ACETAMINOPHEN [Concomitant]
     Active Substance: ACETAMINOPHEN
     Dates: start: 20230313, end: 20230317
  33. ACETAMINOPHEN [Concomitant]
     Active Substance: ACETAMINOPHEN
     Dates: start: 20230320, end: 20230323
  34. MORPHINE HYDROCHLORIDE [Concomitant]
     Active Substance: MORPHINE HYDROCHLORIDE
     Indication: Prophylaxis
     Dates: start: 20220926, end: 20220930
  35. MORPHINE HYDROCHLORIDE [Concomitant]
     Active Substance: MORPHINE HYDROCHLORIDE
     Dates: start: 20221114, end: 20221117
  36. MORPHINE HYDROCHLORIDE [Concomitant]
     Active Substance: MORPHINE HYDROCHLORIDE
     Dates: start: 20221212, end: 20221215
  37. MORPHINE HYDROCHLORIDE [Concomitant]
     Active Substance: MORPHINE HYDROCHLORIDE
     Dates: start: 20230117, end: 20230120
  38. MORPHINE HYDROCHLORIDE [Concomitant]
     Active Substance: MORPHINE HYDROCHLORIDE
     Dates: start: 20230213, end: 20230216
  39. MORPHINE HYDROCHLORIDE [Concomitant]
     Active Substance: MORPHINE HYDROCHLORIDE
     Dates: start: 20230320, end: 20230323
  40. FLURBIPROFEN AXETIL [Concomitant]
     Active Substance: FLURBIPROFEN AXETIL
     Indication: Product used for unknown indication

REACTIONS (37)
  - Neuroblastoma [Fatal]
  - Capillary leak syndrome [Recovered/Resolved]
  - Capillary leak syndrome [Recovering/Resolving]
  - Back pain [Recovered/Resolved]
  - Pyrexia [Recovered/Resolved]
  - C-reactive protein increased [Recovering/Resolving]
  - Fibrin D dimer increased [Recovering/Resolving]
  - Blood lactate dehydrogenase increased [Recovering/Resolving]
  - COVID-19 [Recovered/Resolved]
  - Pain in extremity [Recovered/Resolved]
  - C-reactive protein increased [Recovering/Resolving]
  - C-reactive protein increased [Recovering/Resolving]
  - Pyrexia [Recovered/Resolved]
  - Gamma-glutamyltransferase increased [Not Recovered/Not Resolved]
  - Fibrin D dimer increased [Recovering/Resolving]
  - Weight increased [Recovered/Resolved]
  - Hypoalbuminaemia [Recovered/Resolved]
  - Specific gravity urine increased [Recovered/Resolved]
  - Oedema [Recovered/Resolved]
  - Tremor [Recovered/Resolved]
  - Vision blurred [Recovered/Resolved]
  - C-reactive protein increased [Recovering/Resolving]
  - Fibrin D dimer increased [Recovering/Resolving]
  - Photophobia [Recovering/Resolving]
  - Hypoalbuminaemia [Recovered/Resolved]
  - Pyrexia [Recovered/Resolved]
  - Malaise [Recovered/Resolved]
  - Gamma-glutamyltransferase increased [Not Recovered/Not Resolved]
  - C-reactive protein increased [Recovering/Resolving]
  - Fibrin D dimer increased [Recovering/Resolving]
  - C-reactive protein increased [Recovering/Resolving]
  - C-reactive protein increased [Recovering/Resolving]
  - Fibrin D dimer increased [Not Recovered/Not Resolved]
  - Pyrexia [Recovered/Resolved]
  - Hypoalbuminaemia [Recovering/Resolving]
  - Oedema [Recovering/Resolving]
  - Dyspnoea [Recovered/Resolved]

NARRATIVE: CASE EVENT DATE: 20220926
